FAERS Safety Report 5202667-7 (Version None)
Quarter: 2006Q4

REPORT INFORMATION
  Report Type: 
  Country: None (occurrence: None)
  Receive Date: 20061018
  Receipt Date: 20050510
  Transmission Date: 20070319
  Serious: Yes (Hospitalization, Other)
  Sender: FDA-Public Use
  Company Number: PHEH2005US03648

PATIENT
  Age: 83 Year
  Sex: Male

DRUGS (8)
  1. ZOMETA [Suspect]
     Indication: PROSTATE CANCER METASTATIC
     Dosage: 4 MG, QMO, INTRAVENOUS
     Route: 042
     Dates: start: 20031119, end: 20040505
  2. LIPITOR [Concomitant]
  3. TOPROL-XL [Concomitant]
  4. HYTRIN [Concomitant]
  5. PREDNISONE [Concomitant]
  6. IBUPROFEN [Concomitant]
  7. COUMADIN [Concomitant]
  8. ARANESP [Concomitant]

REACTIONS (11)
  - ANAEMIA [None]
  - BLOOD CREATININE INCREASED [None]
  - BLOOD UREA INCREASED [None]
  - HAEMODIALYSIS [None]
  - HYDRONEPHROSIS [None]
  - LYMPH NODE CANCER METASTATIC [None]
  - MALIGNANT NEOPLASM PROGRESSION [None]
  - METASTASES TO LIVER [None]
  - RENAL ATROPHY [None]
  - RENAL FAILURE [None]
  - URETERIC OBSTRUCTION [None]
